FAERS Safety Report 6162068-4 (Version None)
Quarter: 2009Q2

REPORT INFORMATION
  Report Type: 
  Country: None (occurrence: None)
  Receive Date: 20090421
  Receipt Date: 20090406
  Transmission Date: 20091009
  Serious: Yes (Other)
  Sender: FDA-Public Use
  Company Number: ES-ELI_LILLY_AND_COMPANY-ES200904001193

PATIENT
  Age: 73 Year
  Sex: Female

DRUGS (1)
  1. PROZAC [Suspect]
     Indication: DEPRESSION
     Dosage: 20 MG, DAILY (1/D)
     Route: 065

REACTIONS (5)
  - CULTURE URINE POSITIVE [None]
  - DRUG INTERACTION [None]
  - JOINT DISLOCATION [None]
  - OSTEOMYELITIS [None]
  - SEROTONIN SYNDROME [None]
